FAERS Safety Report 5682895-7 (Version None)
Quarter: 2008Q1

REPORT INFORMATION
  Report Type: 
  Country: None (occurrence: None)
  Receive Date: 20080327
  Receipt Date: 20080320
  Transmission Date: 20080703
  Serious: No
  Sender: FDA-Public Use
  Company Number: CA-PFIZER INC-2007088507

PATIENT
  Age: 60 Year
  Sex: Female

DRUGS (11)
  1. HALCION [Suspect]
     Route: 048
  2. SINEQUAN [Suspect]
     Route: 048
  3. MOS [Suspect]
     Route: 048
  4. FUROSEMIDE [Suspect]
  5. ATIVAN [Suspect]
     Route: 048
  6. DIMENHYDRINATE [Concomitant]
  7. CHLORAL HYDRATE [Concomitant]
  8. SPIRONOLACTONE [Concomitant]
  9. CHLORPHENIRAMINE MALEATE [Concomitant]
  10. SURFAK [Concomitant]
  11. DEXAMETHASONE TAB [Concomitant]

REACTIONS (1)
  - NO ADVERSE EVENT [None]
